FAERS Safety Report 14203455 (Version 1)
Quarter: 2017Q4

REPORT INFORMATION
  Report Type: Report from Study
  Country: DE (occurrence: DE)
  Receive Date: 20171120
  Receipt Date: 20171120
  Transmission Date: 20180321
  Serious: Yes (Other)
  Sender: FDA-Public Use
  Company Number: DE-ROCHE-2027548

PATIENT

DRUGS (2)
  1. ALTEPLASE. [Suspect]
     Active Substance: ALTEPLASE
     Indication: PERIPHERAL ARTERY OCCLUSION
     Dosage: 2 TO 10 MG IN FIRST 3 HOURS
     Route: 013
  2. PROSTAGLANDIN E1 [Concomitant]
     Active Substance: ALPROSTADIL
     Dosage: 2.1 ML/3HOUR
     Route: 013

REACTIONS (4)
  - Peripheral embolism [Unknown]
  - Infection [Unknown]
  - Haematoma [Unknown]
  - Poor peripheral circulation [Unknown]
